FAERS Safety Report 17099884 (Version 9)
Quarter: 2022Q1

REPORT INFORMATION
  Report Type: Report from Study
  Country: ES (occurrence: None)
  Receive Date: 20191202
  Receipt Date: 20220328
  Transmission Date: 20220423
  Serious: Yes (Other)
  Sender: FDA-Public Use
  Company Number: ES-ROCHE-2321521

PATIENT
  Age: 57 Year
  Sex: Male
  Weight: 83 kg

DRUGS (51)
  1. PLACEBO [Suspect]
     Active Substance: UNSPECIFIED INGREDIENT
     Indication: Metastatic malignant melanoma
     Dosage: DATE OF MOST RECENT DOSE OF BLINDED ATEZOLIZUMAB PRIOR TO AE ONSET: 07/JUN/2018
     Route: 041
     Dates: start: 20170914
  2. VEMURAFENIB [Suspect]
     Active Substance: VEMURAFENIB
     Indication: Metastatic malignant melanoma
     Dosage: DATE OF MOST RECENT DOSE OF VEMURAFENIB PRIOR TO THE ONSET OF FIRST OCCURRENCE OF NEPHRITIS: 21/JUN/
     Route: 048
     Dates: start: 20170818
  3. COBIMETINIB [Suspect]
     Active Substance: COBIMETINIB
     Indication: Metastatic malignant melanoma
     Dosage: DATE OF MOST RECENT DOSE OF COBIMETINIB PRIOR TO THE ONSET OF FIRST OCCURRENCE OF NEPHRITIS: 21/JUN/
     Route: 048
     Dates: start: 20170818
  4. LINAGLIPTIN [Concomitant]
     Active Substance: LINAGLIPTIN
     Indication: Diabetes mellitus
     Route: 048
  5. VALSARTAN [Concomitant]
     Active Substance: VALSARTAN
     Indication: Hypertension
     Route: 048
     Dates: start: 20171010
  6. VALSARTAN [Concomitant]
     Active Substance: VALSARTAN
     Route: 048
     Dates: start: 20200402, end: 20200624
  7. LEVOFLOXACIN [Concomitant]
     Active Substance: LEVOFLOXACIN
     Indication: Neutrophilic dermatosis
     Route: 048
     Dates: start: 20180328
  8. LEVOFLOXACIN [Concomitant]
     Active Substance: LEVOFLOXACIN
     Indication: Upper respiratory tract infection
     Route: 048
     Dates: start: 20190106, end: 20190113
  9. LEVOFLOXACIN [Concomitant]
     Active Substance: LEVOFLOXACIN
     Route: 048
     Dates: start: 20191029
  10. PREDNISONE [Concomitant]
     Active Substance: PREDNISONE
     Indication: Neutrophilic dermatosis
     Route: 048
     Dates: start: 20180422
  11. PREDNISONE [Concomitant]
     Active Substance: PREDNISONE
     Route: 048
     Dates: start: 20191015, end: 20191021
  12. PREDNISONE [Concomitant]
     Active Substance: PREDNISONE
     Route: 048
     Dates: start: 20191022, end: 20191028
  13. PREDNISONE [Concomitant]
     Active Substance: PREDNISONE
     Route: 048
     Dates: start: 20191101, end: 20191107
  14. PREDNISONE [Concomitant]
     Active Substance: PREDNISONE
     Route: 048
     Dates: start: 20191108, end: 20191112
  15. PREDNISONE [Concomitant]
     Active Substance: PREDNISONE
     Route: 048
     Dates: start: 20191113, end: 20191117
  16. PREDNISONE [Concomitant]
     Active Substance: PREDNISONE
     Route: 048
     Dates: start: 20191118, end: 20191122
  17. PREDNISONE [Concomitant]
     Active Substance: PREDNISONE
     Route: 048
     Dates: start: 20191123, end: 20200122
  18. PREDNISONE [Concomitant]
     Active Substance: PREDNISONE
     Route: 048
     Dates: start: 20200123, end: 20200305
  19. UNSPECIFIED INGREDIENT [Concomitant]
     Active Substance: UNSPECIFIED INGREDIENT
     Indication: Blood phosphorus
     Route: 048
     Dates: start: 20180607
  20. IBUPROFEN [Concomitant]
     Active Substance: IBUPROFEN
     Indication: Pyrexia
     Route: 048
     Dates: start: 20190103, end: 20190103
  21. ROSUVASTATIN [Concomitant]
     Active Substance: ROSUVASTATIN
     Indication: Hypercholesterolaemia
     Route: 048
     Dates: start: 20190213
  22. CLINDAMYCIN HYDROCHLORIDE [Concomitant]
     Active Substance: CLINDAMYCIN HYDROCHLORIDE
     Indication: Lymphoedema
     Route: 048
     Dates: start: 20190106, end: 20190113
  23. METHYLPREDNISOLONE [Concomitant]
     Active Substance: METHYLPREDNISOLONE
     Indication: Anaphylactic reaction
     Route: 042
     Dates: start: 20190402, end: 20190402
  24. POLARAMINE [Concomitant]
     Active Substance: DEXCHLORPHENIRAMINE MALEATE
     Indication: Anaphylactic reaction
     Route: 065
     Dates: start: 20190402, end: 20190402
  25. RANITIDINE [Concomitant]
     Active Substance: RANITIDINE
     Indication: Anaphylactic reaction
     Route: 065
     Dates: start: 20190402, end: 20190402
  26. TRIMETHOPRIM [Concomitant]
     Active Substance: TRIMETHOPRIM
     Indication: Diarrhoea
     Route: 048
     Dates: start: 20190508
  27. TRIMETHOPRIM [Concomitant]
     Active Substance: TRIMETHOPRIM
     Indication: Prophylaxis
     Route: 048
     Dates: start: 20191029
  28. SULFAMETHOXAZOLE [Concomitant]
     Active Substance: SULFAMETHOXAZOLE
     Indication: Diarrhoea
     Route: 048
     Dates: start: 20190508
  29. SULFAMETHOXAZOLE [Concomitant]
     Active Substance: SULFAMETHOXAZOLE
     Indication: Prophylaxis
     Route: 048
     Dates: start: 20191029
  30. INSULIN NOS [Concomitant]
     Active Substance: INSULIN NOS
     Indication: Blood glucose increased
     Route: 058
     Dates: start: 20190530
  31. CLOVATE (SPAIN) [Concomitant]
     Indication: Rash
     Route: 061
     Dates: start: 20190930, end: 20191007
  32. AMOXICILLIN [Concomitant]
     Active Substance: AMOXICILLIN
     Indication: Rash
     Route: 048
     Dates: start: 20190930, end: 20191007
  33. ACIDO CLAVULANICO [Concomitant]
     Indication: Rash
     Route: 048
     Dates: start: 20190930, end: 20191007
  34. METFORMIN HYDROCHLORIDE [Concomitant]
     Active Substance: METFORMIN HYDROCHLORIDE
     Indication: Diabetes mellitus
     Route: 048
     Dates: start: 20190923
  35. METFORMIN HYDROCHLORIDE [Concomitant]
     Active Substance: METFORMIN HYDROCHLORIDE
     Route: 048
  36. TRIMETOPRIMA [Concomitant]
     Route: 048
     Dates: start: 20191029, end: 20200304
  37. TELMISARTAN [Concomitant]
     Active Substance: TELMISARTAN
     Indication: Hypertension
     Route: 048
     Dates: start: 20200210, end: 20200401
  38. TELMISARTAN [Concomitant]
     Active Substance: TELMISARTAN
     Route: 048
     Dates: start: 20200625, end: 20200727
  39. TELMISARTAN [Concomitant]
     Active Substance: TELMISARTAN
     Route: 048
     Dates: start: 20200728
  40. ROCALTROL [Concomitant]
     Active Substance: CALCITRIOL
     Indication: Hypertension
     Route: 048
     Dates: start: 20200210, end: 20200401
  41. CAPTOPRIL [Concomitant]
     Active Substance: CAPTOPRIL
     Indication: Hypertension
     Route: 048
     Dates: start: 20200319, end: 20200319
  42. AMLODIPINE BESYLATE [Concomitant]
     Active Substance: AMLODIPINE BESYLATE
     Indication: Hypertension
     Route: 048
     Dates: start: 20200319, end: 20200610
  43. LERCANIDIPINO [Concomitant]
     Indication: Hypertension
     Route: 048
     Dates: start: 20200611
  44. EZETIMIBE\ROSUVASTATIN ZINC [Concomitant]
     Active Substance: EZETIMIBE\ROSUVASTATIN ZINC
     Route: 048
     Dates: start: 20200210
  45. PANTOPRAZOLE [Concomitant]
     Active Substance: PANTOPRAZOLE
     Indication: Gastric ulcer
     Route: 048
     Dates: start: 20200210
  46. METAMIZOLE [Concomitant]
     Active Substance: METAMIZOLE
     Indication: Obstructive pancreatitis
     Route: 030
     Dates: start: 20201227, end: 20210104
  47. DAPAGLIFLOZIN [Concomitant]
     Active Substance: DAPAGLIFLOZIN
     Indication: Diabetes mellitus
     Route: 048
     Dates: start: 20210630
  48. COVID-19 VACCINE [Concomitant]
     Indication: COVID-19
     Route: 058
     Dates: start: 20210423, end: 20210423
  49. COVID-19 VACCINE [Concomitant]
     Route: 058
     Dates: start: 20210521, end: 20210521
  50. COVID-19 VACCINE [Concomitant]
     Route: 058
     Dates: start: 20210923, end: 20210923
  51. CEFDITOREN [Concomitant]
     Active Substance: CEFDITOREN
     Indication: Respiratory tract infection
     Route: 048
     Dates: start: 20211021, end: 20211025

REACTIONS (4)
  - Nephritis [Recovered/Resolved]
  - Nephritis [Recovered/Resolved]
  - Nephritis [Recovered/Resolved]
  - Chorioretinopathy [Recovering/Resolving]

NARRATIVE: CASE EVENT DATE: 20180301
